FAERS Safety Report 14165691 (Version 1)
Quarter: 2017Q4

REPORT INFORMATION
  Report Type: Spontaneous
  Country: ES (occurrence: ES)
  Receive Date: 20171107
  Receipt Date: 20171107
  Transmission Date: 20180321
  Serious: Yes (Other)
  Sender: FDA-Public Use
  Company Number: ES-BAYER-2017-209321

PATIENT
  Age: 36 Year
  Sex: Female
  Weight: 90 kg

DRUGS (1)
  1. JAYDESS [Suspect]
     Active Substance: LEVONORGESTREL
     Indication: CONTRACEPTION
     Dosage: 14 MCG/24HR, CONT
     Route: 015
     Dates: start: 20160218

REACTIONS (1)
  - Fungal test [Not Recovered/Not Resolved]

NARRATIVE: CASE EVENT DATE: 20161202
